FAERS Safety Report 6676480-8 (Version None)
Quarter: 2010Q2

REPORT INFORMATION
  Report Type: 
  Country: None (occurrence: None)
  Receive Date: 20100412
  Receipt Date: 20100407
  Transmission Date: 20101027
  Serious: Yes (Hospitalization)
  Sender: FDA-Public Use
  Company Number: PHHY2009JP44481

PATIENT
  Sex: Male
  Weight: 72 kg

DRUGS (7)
  1. COMTAN CMT+TAB [Suspect]
     Indication: PARKINSON'S DISEASE
     Dosage: 400 MG
     Route: 048
     Dates: start: 20081007
  2. CARBIDOPA AND LEVODOPA [Concomitant]
     Indication: PARKINSON'S DISEASE
     Dosage: 300 MG
     Route: 048
     Dates: start: 20030820, end: 20081007
  3. MADOPAR [Concomitant]
     Indication: PARKINSON'S DISEASE
     Dosage: 400 MG
     Route: 048
     Dates: start: 20081008
  4. SYMMETREL [Concomitant]
     Indication: PARKINSON'S DISEASE
     Dosage: 100 MG
     Route: 048
     Dates: start: 20050913
  5. PRAMIPEXOLE DIHYDROCHLORIDE [Concomitant]
     Indication: PARKINSON'S DISEASE
     Dosage: 1.5 MG
     Route: 048
     Dates: start: 20070508
  6. JUVELA NICOTINATE [Concomitant]
     Indication: NEUROPATHY PERIPHERAL
     Dosage: 600 MG
     Route: 048
     Dates: start: 19970826
  7. SELBEX [Concomitant]
     Indication: GASTRITIS
     Dosage: 150 MG
     Route: 048
     Dates: start: 19990907

REACTIONS (8)
  - BLOOD CREATINE PHOSPHOKINASE INCREASED [None]
  - BLOOD CREATININE INCREASED [None]
  - BLOOD UREA INCREASED [None]
  - CARDIAC FAILURE [None]
  - CIRCULATORY COLLAPSE [None]
  - DEEP BRAIN STIMULATION [None]
  - DYSPNOEA [None]
  - HYPOGLYCAEMIA [None]
